FAERS Safety Report 7539148-1 (Version None)
Quarter: 2011Q2

REPORT INFORMATION
  Report Type: 
  Country: None (occurrence: None)
  Receive Date: 20110610
  Receipt Date: 20071015
  Transmission Date: 20111010
  Serious: Yes (Death, Hospitalization, Other)
  Sender: FDA-Public Use
  Company Number: PHFR2007GB02698

PATIENT
  Sex: Female
  Weight: 86 kg

DRUGS (12)
  1. NAPROXEN [Concomitant]
     Dosage: 500 MG PER DAY
     Route: 048
  2. COMBIVENT [Concomitant]
     Dosage: 4 OT, UNK
  3. FLUOXETINE HCL [Concomitant]
     Dosage: 40 MG PER DAY
     Route: 048
  4. LACTULOSE [Concomitant]
     Dosage: 10-20ML PRN
  5. TEMAZEPAM [Concomitant]
     Dosage: 20 MG PER DAY
     Route: 048
  6. ACETAMINOPHEN AND CODEINE PHOSPHATE [Concomitant]
     Dosage: 8 OT, UNK
  7. CLOZAPINE [Suspect]
     Indication: SCHIZOPHRENIA
     Dosage: 50 MG PER DAY
     Route: 048
     Dates: start: 19960412
  8. ASPIRIN [Concomitant]
     Dosage: 150 MG PER DAY
     Route: 048
  9. AMLODIPINE [Concomitant]
     Dosage: 10 MG, UNK
     Route: 048
  10. SENNA-MINT WAF [Concomitant]
     Dosage: 15 MG NOCTE
  11. PEPTAC [Concomitant]
     Dosage: PRN
  12. CALCICHEW-D3 [Concomitant]
     Dosage: 1 OT, UNK

REACTIONS (6)
  - LUNG NEOPLASM MALIGNANT [None]
  - RESPIRATORY FAILURE [None]
  - CIRCULATORY COLLAPSE [None]
  - SEPSIS [None]
  - NEUTROPHIL COUNT INCREASED [None]
  - WHITE BLOOD CELL COUNT INCREASED [None]
